FAERS Safety Report 23945646 (Version 3)
Quarter: 2024Q2

REPORT INFORMATION
  Report Type: Spontaneous
  Country: JP (occurrence: JP)
  Receive Date: 20240606
  Receipt Date: 20240625
  Transmission Date: 20240716
  Serious: Yes (Hospitalization, Other)
  Sender: FDA-Public Use
  Company Number: JP-MSD-2406JPN000381JAA

PATIENT
  Age: 5 Decade
  Sex: Male

DRUGS (3)
  1. JANUVIA [Interacting]
     Active Substance: SITAGLIPTIN PHOSPHATE
     Indication: Oedema peripheral
     Dosage: 50 MILLIGRAM, QD
     Route: 048
     Dates: start: 202401, end: 202401
  2. VOGLIBOSE [Interacting]
     Active Substance: VOGLIBOSE
     Indication: Oedema peripheral
     Dosage: 0.2 MILLIGRAM, TID
     Route: 048
     Dates: start: 202401, end: 202401
  3. VALSARTAN [Concomitant]
     Active Substance: VALSARTAN
     Indication: Oedema peripheral
     Dosage: 80 MILLIGRAM, QD
     Route: 048
     Dates: start: 202401, end: 202401

REACTIONS (5)
  - Hypoglycaemia [Recovered/Resolved]
  - Hypoglycaemic coma [Recovered/Resolved]
  - Prescription drug used without a prescription [Unknown]
  - Intentional product misuse [Unknown]
  - Labelled drug-drug interaction medication error [Unknown]

NARRATIVE: CASE EVENT DATE: 20240101
